FAERS Safety Report 23980064 (Version 5)
Quarter: 2024Q3

REPORT INFORMATION
  Report Type: Spontaneous
  Country: GB (occurrence: GB)
  Receive Date: 20240617
  Receipt Date: 20240924
  Transmission Date: 20241016
  Serious: Yes (Hospitalization, Other)
  Sender: BAXTER
  Company Number: GB-SANDOZ-SDZ2023GB063071

PATIENT
  Sex: Female

DRUGS (66)
  1. CYCLOPHOSPHAMIDE [Suspect]
     Active Substance: CYCLOPHOSPHAMIDE
     Indication: Metaplastic breast carcinoma
     Dosage: UNK, CYCLIC (4 CYCLES), DOSAGE FORM: POWDER FOR SOLUTION FOR INJECTION
     Route: 065
  2. CYCLOPHOSPHAMIDE [Suspect]
     Active Substance: CYCLOPHOSPHAMIDE
     Indication: Triple negative breast cancer
     Dosage: UNK, CYCLIC (4 CYCLES), DOSAGE FORM: POWDER FOR SOLUTION FOR INJECTION
     Route: 065
  3. CYCLOPHOSPHAMIDE [Suspect]
     Active Substance: CYCLOPHOSPHAMIDE
     Dosage: UNK, CYCLIC (4 CYCLES), DOSAGE FORM: POWDER FOR SOLUTION FOR INJECTION
     Route: 065
  4. CYCLOPHOSPHAMIDE [Suspect]
     Active Substance: CYCLOPHOSPHAMIDE
     Dosage: UNK, CYCLIC (4 CYCLES), DOSAGE FORM: POWDER FOR SOLUTION FOR INJECTION
     Route: 065
  5. CYCLOPHOSPHAMIDE [Suspect]
     Active Substance: CYCLOPHOSPHAMIDE
     Dosage: UNK, CYCLIC (4 CYCLES), DOSAGE FORM: POWDER FOR SOLUTION FOR INJECTION
     Route: 065
  6. CYCLOPHOSPHAMIDE [Suspect]
     Active Substance: CYCLOPHOSPHAMIDE
     Dosage: UNK, CYCLIC (4 CYCLES), DOSAGE FORM: POWDER FOR SOLUTION FOR INJECTION
     Route: 065
  7. CYCLOPHOSPHAMIDE [Suspect]
     Active Substance: CYCLOPHOSPHAMIDE
     Dosage: UNK, CYCLIC (4 CYCLES), DOSAGE FORM: POWDER FOR SOLUTION FOR INJECTION
     Route: 065
  8. CYCLOPHOSPHAMIDE [Suspect]
     Active Substance: CYCLOPHOSPHAMIDE
     Dosage: UNK, CYCLIC (4 CYCLES), DOSAGE FORM: POWDER FOR SOLUTION FOR INJECTION
     Route: 065
  9. CYCLOPHOSPHAMIDE [Suspect]
     Active Substance: CYCLOPHOSPHAMIDE
     Dosage: UNK, CYCLIC (4 CYCLES), DOSAGE FORM: POWDER FOR SOLUTION FOR INJECTION
     Route: 065
  10. CYCLOPHOSPHAMIDE [Suspect]
     Active Substance: CYCLOPHOSPHAMIDE
     Dosage: UNK, CYCLIC (4 CYCLES), DOSAGE FORM: POWDER FOR SOLUTION FOR INJECTION
     Route: 065
  11. CYCLOPHOSPHAMIDE [Suspect]
     Active Substance: CYCLOPHOSPHAMIDE
     Dosage: UNK, CYCLIC (4 CYCLES), DOSAGE FORM: POWDER FOR SOLUTION FOR INJECTION, START DATE: 2023
     Route: 065
  12. CYCLOPHOSPHAMIDE [Suspect]
     Active Substance: CYCLOPHOSPHAMIDE
     Dosage: UNK, CYCLIC (4 CYCLES), DOSAGE FORM: POWDER FOR SOLUTION FOR INJECTION, START DATE: 2023
     Route: 065
  13. CYCLOPHOSPHAMIDE [Suspect]
     Active Substance: CYCLOPHOSPHAMIDE
     Dosage: UNK, CYCLIC (4 CYCLES), DOSAGE FORM: POWDER FOR SOLUTION FOR INJECTION, START DATE: 2023
     Route: 065
  14. CYCLOPHOSPHAMIDE [Suspect]
     Active Substance: CYCLOPHOSPHAMIDE
     Dosage: UNK, CYCLIC (4 CYCLES), DOSAGE FORM: POWDER FOR SOLUTION FOR INJECTION, START DATE: 2023
     Route: 065
  15. CYCLOPHOSPHAMIDE [Suspect]
     Active Substance: CYCLOPHOSPHAMIDE
     Dosage: UNK, CYCLIC (4 CYCLES), DOSAGE FORM: POWDER FOR SOLUTION FOR INJECTION, START DATE: 2023
     Route: 065
  16. CYCLOPHOSPHAMIDE [Suspect]
     Active Substance: CYCLOPHOSPHAMIDE
     Dosage: UNK, CYCLIC (4 CYCLES), DOSAGE FORM: POWDER FOR SOLUTION FOR INJECTION, START DATE: 2023
     Route: 065
  17. EPIRUBICIN [Suspect]
     Active Substance: EPIRUBICIN
     Indication: Metaplastic breast carcinoma
     Dosage: UNK, CYCLIC (4 CYCLES), START DATE: 2023
     Route: 065
  18. EPIRUBICIN [Suspect]
     Active Substance: EPIRUBICIN
     Indication: Triple negative breast cancer
     Dosage: UNK, CYCLIC (4 CYCLES)
     Route: 065
  19. EPIRUBICIN [Suspect]
     Active Substance: EPIRUBICIN
     Dosage: UNK
     Route: 065
  20. EPIRUBICIN [Suspect]
     Active Substance: EPIRUBICIN
     Dosage: UNK, CYCLIC (4 CYCLES)
     Route: 065
  21. EPIRUBICIN [Suspect]
     Active Substance: EPIRUBICIN
     Dosage: UNK, CYCLIC (4 CYCLES)
     Route: 065
  22. EPIRUBICIN [Suspect]
     Active Substance: EPIRUBICIN
     Dosage: UNK, CYCLIC (4 CYCLES)
     Route: 065
  23. EPIRUBICIN [Suspect]
     Active Substance: EPIRUBICIN
     Dosage: UNK, CYCLIC (4 CYCLES) ROUTE OF ADMIN (FREE TEXT): UNKNOWN ROUTE
     Route: 065
  24. EPIRUBICIN [Suspect]
     Active Substance: EPIRUBICIN
     Dosage: UNK, CYCLIC (4 CYCLES)
     Route: 065
  25. EPIRUBICIN [Suspect]
     Active Substance: EPIRUBICIN
     Dosage: UNK, CYCLIC (4 CYCLES)
     Route: 065
  26. EPIRUBICIN [Suspect]
     Active Substance: EPIRUBICIN
     Dosage: UNK, CYCLIC (4 CYCLES)
     Route: 065
  27. EPIRUBICIN [Suspect]
     Active Substance: EPIRUBICIN
     Dosage: UNK, CYCLIC (4 CYCLES)
     Route: 065
  28. EPIRUBICIN [Suspect]
     Active Substance: EPIRUBICIN
     Dosage: UNK
     Route: 065
  29. EPIRUBICIN [Suspect]
     Active Substance: EPIRUBICIN
     Dosage: UNK, CYCLIC (4 CYCLES) ROUTE OF ADMIN (FREE TEXT): UNKNOWN ROUTE
     Route: 065
  30. EPIRUBICIN [Suspect]
     Active Substance: EPIRUBICIN
     Dosage: UNK, CYCLIC (4 CYCLES) ROUTE OF ADMIN (FREE TEXT): UNKNOWN ROUTE
     Route: 065
  31. EPIRUBICIN [Suspect]
     Active Substance: EPIRUBICIN
     Dosage: UNK, CYCLIC (4 CYCLES) ROUTE OF ADMIN (FREE TEXT): UNKNOWN ROUTE
     Route: 065
  32. EPIRUBICIN [Suspect]
     Active Substance: EPIRUBICIN
     Dosage: UNK, CYCLIC (4 CYCLES) ROUTE OF ADMIN (FREE TEXT): UNKNOWN ROUTE
     Route: 065
  33. EPIRUBICIN [Suspect]
     Active Substance: EPIRUBICIN
     Dosage: UNK, CYCLIC (4 CYCLES) ROUTE OF ADMIN (FREE TEXT): UNKNOWN ROUTE
     Route: 065
  34. EPIRUBICIN [Suspect]
     Active Substance: EPIRUBICIN
     Dosage: UNK, CYCLIC (4 CYCLES)
     Route: 065
     Dates: start: 2023
  35. KEYTRUDA [Suspect]
     Active Substance: PEMBROLIZUMAB
     Indication: Triple negative breast cancer
     Dosage: UNK, CYCLIC (4 CYCLES), START DATE: 2023
     Route: 065
     Dates: end: 20230523
  36. KEYTRUDA [Suspect]
     Active Substance: PEMBROLIZUMAB
     Indication: Metaplastic breast carcinoma
     Dosage: UNK, CYCLIC (4 CYCLES), START DATE: 2023
     Route: 065
     Dates: end: 20230523
  37. KEYTRUDA [Suspect]
     Active Substance: PEMBROLIZUMAB
     Dosage: UNK, CYCLIC (4 CYCLES), START DATE: 2023
     Route: 065
     Dates: end: 20230523
  38. KEYTRUDA [Suspect]
     Active Substance: PEMBROLIZUMAB
     Dosage: UNK, CYCLIC (4 CYCLES), STOP DATE: MAY-2023
     Route: 065
     Dates: start: 20230523
  39. KEYTRUDA [Suspect]
     Active Substance: PEMBROLIZUMAB
     Dosage: UNK, CYCLIC (4 CYCLES), STOP DATE: MAY-2023
     Route: 065
     Dates: start: 20230523
  40. KEYTRUDA [Suspect]
     Active Substance: PEMBROLIZUMAB
     Dosage: UNK, CYCLIC (4 CYCLES), STOP DATE: MAY-2023
     Route: 065
     Dates: start: 20230523
  41. CARBOPLATIN [Suspect]
     Active Substance: CARBOPLATIN
     Indication: Triple negative breast cancer
     Dosage: UNK, CYCLIC (4 CYCLES), START DATE: 2023
     Route: 065
  42. CARBOPLATIN [Suspect]
     Active Substance: CARBOPLATIN
     Indication: Metaplastic breast carcinoma
     Dosage: UNK, CYCLIC (4 CYCLES), START DATE: 2023
     Route: 065
  43. CARBOPLATIN [Suspect]
     Active Substance: CARBOPLATIN
     Dosage: UNK, CYCLIC (4 CYCLES), START DATE: 2023
     Route: 065
  44. CARBOPLATIN [Suspect]
     Active Substance: CARBOPLATIN
     Dosage: UNK, CYCLE (3 CYCLE)
     Route: 065
  45. CARBOPLATIN [Suspect]
     Active Substance: CARBOPLATIN
     Dosage: UNK CYCLE (4 CYCLES), START DATE: 2023
     Route: 065
     Dates: start: 2023
  46. CARBOPLATIN [Suspect]
     Active Substance: CARBOPLATIN
     Dosage: UNK, CYCLIC (4 CYCLES), START DATE: 2023
     Route: 065
  47. CARBOPLATIN [Suspect]
     Active Substance: CARBOPLATIN
     Dosage: UNK, CYCLIC (4 CYCLES), START DATE: 2023
     Route: 065
  48. CARBOPLATIN [Suspect]
     Active Substance: CARBOPLATIN
     Dosage: UNK CYCLE (4 CYCLES), START DATE: 2023
     Route: 065
     Dates: start: 2023
  49. CARBOPLATIN [Suspect]
     Active Substance: CARBOPLATIN
     Dosage: UNK CYCLE (4 CYCLES), START DATE: 2023
     Route: 065
     Dates: start: 2023
  50. CARBOPLATIN [Suspect]
     Active Substance: CARBOPLATIN
     Dosage: UNK CYCLE (4 CYCLES), START DATE: 2023
     Route: 065
     Dates: start: 2023
  51. CARBOPLATIN [Suspect]
     Active Substance: CARBOPLATIN
     Dosage: UNK CYCLE (4 CYCLES), START DATE: 2023
     Route: 065
     Dates: start: 2023
  52. CARBOPLATIN [Suspect]
     Active Substance: CARBOPLATIN
     Dosage: UNK CYCLE (4 CYCLES), START DATE: 2023
     Route: 065
     Dates: start: 2023
  53. CARBOPLATIN [Suspect]
     Active Substance: CARBOPLATIN
     Dosage: UNK CYCLE (4 CYCLES), START DATE: 2023
     Route: 065
     Dates: start: 2023
  54. CARBOPLATIN [Suspect]
     Active Substance: CARBOPLATIN
     Dosage: UNK CYCLE (4 CYCLES), START DATE: 2023
     Route: 065
     Dates: start: 2023
  55. PACLITAXEL [Suspect]
     Active Substance: PACLITAXEL
     Indication: Metaplastic breast carcinoma
     Dosage: UNK, CYCLIC (4 CYCLES), START DATE: 2023, STOP DATE: 2023
     Route: 065
  56. PACLITAXEL [Suspect]
     Active Substance: PACLITAXEL
     Indication: Triple negative breast cancer
     Dosage: UNK, CYCLIC (4 CYCLES), START DATE: 2023
     Route: 065
  57. PACLITAXEL [Suspect]
     Active Substance: PACLITAXEL
     Dosage: UNK, CYCLIC (4 CYCLES), START DATE: 2023
     Route: 065
  58. PACLITAXEL [Suspect]
     Active Substance: PACLITAXEL
     Dosage: UNK, CYCLIC (3 CYCLES), START DATE: 2023
     Route: 065
  59. PACLITAXEL [Suspect]
     Active Substance: PACLITAXEL
     Dosage: UNK, START DATE: 2023
     Route: 065
  60. PACLITAXEL [Suspect]
     Active Substance: PACLITAXEL
     Dosage: UNK
     Route: 065
  61. PACLITAXEL [Suspect]
     Active Substance: PACLITAXEL
     Dosage: UNK, CYCLIC (3 CYCLES), START DATE: 2023
     Route: 065
  62. PACLITAXEL [Suspect]
     Active Substance: PACLITAXEL
     Dosage: UNK, CYCLIC (3 CYCLES), START DATE: 2023
     Route: 065
  63. PACLITAXEL [Suspect]
     Active Substance: PACLITAXEL
     Dosage: UNK, CYCLIC (4 CYCLES), START DATE: 2023
     Route: 065
  64. PACLITAXEL [Suspect]
     Active Substance: PACLITAXEL
     Dosage: UNK, CYCLIC (4 CYCLES), START DATE: 2023
     Route: 065
  65. PACLITAXEL [Suspect]
     Active Substance: PACLITAXEL
     Dosage: UNK, CYCLIC (4 CYCLES), START DATE: 2023, STOP DATE: 2023
     Route: 065
  66. PACLITAXEL [Suspect]
     Active Substance: PACLITAXEL
     Dosage: UNK, CYCLIC (4 CYCLES), START DATE: 2023
     Route: 065

REACTIONS (6)
  - Therapy non-responder [Unknown]
  - Drug ineffective [Unknown]
  - Neoplasm progression [Unknown]
  - Pneumonitis [Recovering/Resolving]
  - Hypertransaminasaemia [Recovering/Resolving]
  - Hepatic function abnormal [Recovering/Resolving]
